FAERS Safety Report 5012397-2 (Version None)
Quarter: 2006Q2

REPORT INFORMATION
  Report Type: 
  Country: None (occurrence: None)
  Receive Date: 20060411
  Receipt Date: 20060301
  Transmission Date: 20061013
  Serious: No
  Sender: FDA-Public Use
  Company Number: 2005S1000238

PATIENT
  Age: 80 Year
  Sex: Female
  Weight: 68 kg

DRUGS (26)
  1. CUBICIN [Suspect]
     Indication: INTERVERTEBRAL DISCITIS
     Dosage: 500 MG;Q24H;IV
     Route: 042
  2. CUBICIN [Suspect]
     Indication: OSTEOMYELITIS
     Dosage: 500 MG;Q24H;IV
     Route: 042
  3. LOVENOX [Concomitant]
  4. LIPITOR [Concomitant]
  5. RESTORIL [Concomitant]
  6. GLIPIZIDE [Concomitant]
  7. INSULIN [Concomitant]
  8. METOLAZONE [Concomitant]
  9. ALDACTONE [Concomitant]
  10. LASIX [Concomitant]
  11. LEVOTHYROXINE SODIUM [Concomitant]
  12. VITAMIN B-12 [Concomitant]
  13. MULTI-VITAMIN [Concomitant]
  14. MIRCO-K [Concomitant]
  15. OXYMETAZOLINE [Concomitant]
  16. TIGAN [Concomitant]
  17. PANTOPRAZOLE [Concomitant]
  18. METOCLOPRAMIDE [Concomitant]
  19. MIRALAX [Concomitant]
  20. TEGASEROD [Concomitant]
  21. ZOLOFT [Concomitant]
  22. VANCOMYCIN [Concomitant]
  23. VENTOLIN [Concomitant]
  24. ATROVENT [Concomitant]
  25. NEURONTIN [Concomitant]
  26. MORPHINE [Concomitant]

REACTIONS (2)
  - INTERNATIONAL NORMALISED RATIO INCREASED [None]
  - PROTHROMBIN TIME PROLONGED [None]
